FAERS Safety Report 21257829 (Version 1)
Quarter: 2022Q3

REPORT INFORMATION
  Report Type: Other
  Country: US (occurrence: None)
  Receive Date: 20220826
  Receipt Date: 20220826
  Transmission Date: 20221026
  Serious: Yes (Other)
  Sender: FDA-Public Use
  Company Number: US-ROCHE-3166209

PATIENT
  Sex: Male

DRUGS (1)
  1. OCREVUS [Suspect]
     Active Substance: OCRELIZUMAB
     Indication: Multiple sclerosis
     Dosage: 600MG EVERY 6 MONTHS
     Route: 065

REACTIONS (7)
  - Hemiparesis [Unknown]
  - Tandem gait test abnormal [Unknown]
  - Muscular weakness [Unknown]
  - Migraine [Unknown]
  - Photophobia [Unknown]
  - Phonophobia [Unknown]
  - Nausea [Unknown]
